FAERS Safety Report 8734846 (Version 2)
Quarter: 2012Q4

REPORT INFORMATION
  Report Type: 
  Country: NL (occurrence: NL)
  Receive Date: 20120821
  Receipt Date: 20121119
  Transmission Date: 20130627
  Serious: Yes (Hospitalization)
  Sender: FDA-Public Use
  Company Number: NL-PFIZER INC-2012201082

PATIENT
  Age: 69 Year
  Sex: Female
  Weight: 70.2 kg

DRUGS (7)
  1. GENOTROPIN [Suspect]
     Dosage: 0.8 mg, 7/wk
     Route: 058
     Dates: start: 20020508
  2. LEVOTHYROXINE [Concomitant]
     Indication: THYROID DISORDER
     Dosage: UNK
     Dates: start: 19750701
  3. LEVOTHYROXINE [Concomitant]
     Indication: PRIMARY HYPOTHYROIDISM
  4. ESTRADERM [Concomitant]
     Indication: LUTEINISING HORMONE DEFICIENCY
     Dosage: UNK
     Dates: start: 19750701
  5. ESTRADERM [Concomitant]
     Indication: FOLLICLE-STIMULATING HORMONE DEFICIENCY
  6. ESTRADERM [Concomitant]
     Indication: HYPOGONADISM FEMALE
  7. CORTISONE ACETATE [Concomitant]
     Indication: BLOOD CORTICOTROPHIN DECREASED
     Dosage: UNK
     Dates: start: 19750701

REACTIONS (1)
  - Bladder disorder [Unknown]
